FAERS Safety Report 7227584-2 (Version None)
Quarter: 2011Q1

REPORT INFORMATION
  Report Type: 
  Country: None (occurrence: None)
  Receive Date: 20110114
  Receipt Date: 20101105
  Transmission Date: 20110831
  Serious: Yes (Hospitalization)
  Sender: FDA-Public Use
  Company Number: SE-JNJFOC-20080401220

PATIENT
  Age: 69 Year
  Sex: Female

DRUGS (14)
  1. SELOKEN [Concomitant]
     Route: 048
  2. GLYTRIN [Concomitant]
     Route: 048
  3. TROMBYL [Concomitant]
     Route: 048
  4. REMICADE [Suspect]
     Indication: RHEUMATOID ARTHRITIS
     Route: 042
  5. METHOTREXATE [Concomitant]
     Route: 048
  6. CALICHEW [Concomitant]
     Route: 048
  7. SINCON [Concomitant]
     Route: 047
  8. TRIATEC [Concomitant]
     Route: 048
  9. FOLACIN [Concomitant]
     Route: 048
  10. OMEPRAZOLE [Concomitant]
     Route: 048
  11. SIMVASTATIN [Concomitant]
     Route: 048
  12. IBUMETIN [Concomitant]
     Route: 048
  13. TRAMADOL [Concomitant]
     Route: 048
  14. PLAVIX [Concomitant]
     Route: 048

REACTIONS (1)
  - CERVICAL DYSPLASIA [None]
